FAERS Safety Report 5416047-2 (Version None)
Quarter: 2007Q3

REPORT INFORMATION
  Report Type: 
  Country: None (occurrence: None)
  Receive Date: 20070815
  Receipt Date: 20070806
  Transmission Date: 20080115
  Serious: Yes (Other)
  Sender: FDA-Public Use
  Company Number: GB-MERCK-0708GBR00019

PATIENT
  Age: 29 Year
  Sex: Male

DRUGS (4)
  1. COZAAR [Suspect]
     Route: 065
  2. CETIRIZINE HCL [Suspect]
     Route: 048
  3. ALBUTEROL [Suspect]
     Route: 065
  4. VARENICLINE TARTRATE [Suspect]
     Route: 048

REACTIONS (1)
  - CONVULSION [None]
